FAERS Safety Report 8372226-6 (Version None)
Quarter: 2012Q2

REPORT INFORMATION
  Report Type: 
  Country: None (occurrence: None)
  Receive Date: 20120521
  Receipt Date: 20120510
  Transmission Date: 20120825
  Serious: Yes (Hospitalization)
  Sender: FDA-Public Use
  Company Number: US-BIOGENIDEC-2012BI016959

PATIENT
  Age: 59 Year
  Sex: Female

DRUGS (3)
  1. TYSABRI [Suspect]
     Indication: MULTIPLE SCLEROSIS
     Route: 042
     Dates: start: 20100322
  2. TYSABRI [Suspect]
     Route: 042
     Dates: start: 20070201, end: 20090522
  3. TYSABRI [Suspect]
     Route: 042
     Dates: start: 20050131

REACTIONS (1)
  - MULTIPLE SCLEROSIS RELAPSE [None]
